FAERS Safety Report 5383028-7 (Version None)
Quarter: 2007Q3

REPORT INFORMATION
  Report Type: 
  Country: None (occurrence: None)
  Receive Date: 20070710
  Receipt Date: 20070628
  Transmission Date: 20080115
  Serious: Yes (Other)
  Sender: FDA-Public Use
  Company Number: SE-ROCHE-504662

PATIENT
  Age: 46 Year
  Sex: Female

DRUGS (5)
  1. XELODA [Suspect]
     Indication: DRUG USE FOR UNKNOWN INDICATION
     Route: 048
  2. ZOMETA [Suspect]
     Indication: DRUG USE FOR UNKNOWN INDICATION
     Dosage: FORMULATION REPORTED AS ^CONCENTRATE FOR SOLUTION FOR INFUSION^. STRENGTH REPORTED AS ^4 MG/5 ML^.
     Route: 065
  3. TAXOTERE [Suspect]
     Indication: DRUG USE FOR UNKNOWN INDICATION
     Dosage: FORMULATION REPORTED AS ^CONCENTRATE AND SOLVENT FOR SOLUTION FOR INFUSION^.
     Route: 065
  4. ALVEDON [Concomitant]
  5. BETAPRED [Concomitant]

REACTIONS (1)
  - OSTEONECROSIS [None]
